FAERS Safety Report 26039976 (Version 1)
Quarter: 2025Q4

REPORT INFORMATION
  Report Type: Spontaneous
  Country: US (occurrence: None)
  Receive Date: 20251113
  Receipt Date: 20251113
  Transmission Date: 20260118
  Serious: No
  Sender: ORION
  Company Number: US-Orion Corporation ORION PHARMA-ENTC2025-0065

PATIENT
  Age: 88 Year
  Sex: Female

DRUGS (1)
  1. STALEVO [Suspect]
     Active Substance: CARBIDOPA\ENTACAPONE\LEVODOPA
     Indication: Product used for unknown indication

REACTIONS (1)
  - Wrong technique in product usage process [Unknown]
